FAERS Safety Report 18860731 (Version 5)
Quarter: 2023Q1

REPORT INFORMATION
  Report Type: Spontaneous
  Country: US (occurrence: US)
  Receive Date: 20210208
  Receipt Date: 20230124
  Transmission Date: 20230417
  Serious: Yes (Hospitalization, Other)
  Sender: FDA-Public Use
  Company Number: US-PFIZER INC-2021112472

PATIENT
  Age: 70 Year
  Sex: Female
  Weight: 72.57 kg

DRUGS (7)
  1. IBRANCE [Suspect]
     Active Substance: PALBOCICLIB
     Indication: Neoplasm malignant
     Dosage: 75 MG, CYCLIC (75 MG, ONCE DAILY FOR 21 DAYS ON THEN 7 DAYS OFF)
     Dates: start: 2015, end: 20210625
  2. IBRANCE [Suspect]
     Active Substance: PALBOCICLIB
     Indication: Breast cancer female
     Dosage: 75 MG, CYCLIC (75 MG ONCE DAILY FOR 21 DAYS ON THEN 7 DAYS OFF)
     Dates: start: 20210811
  3. LETROZOLE [Suspect]
     Active Substance: LETROZOLE
     Indication: Neoplasm malignant
     Dosage: UNK
     Dates: start: 2015, end: 20210625
  4. FIORICET [Concomitant]
     Active Substance: ACETAMINOPHEN\BUTALBITAL\CAFFEINE
     Indication: Headache
     Dosage: UNK, AS NEEDED
  5. NEXIUM SANDOZ [Concomitant]
     Indication: Gastrooesophageal reflux disease
     Dosage: 0.5
  6. BUTALBITAL [Concomitant]
     Active Substance: BUTALBITAL
     Indication: Migraine
     Dosage: UNK, AS NEEDED
  7. ALPRAZOLAM [Concomitant]
     Active Substance: ALPRAZOLAM
     Dosage: 0.5 MG, AS NEEDED

REACTIONS (4)
  - Cerebrovascular accident [Recovered/Resolved with Sequelae]
  - Neoplasm progression [Unknown]
  - Malaise [Unknown]
  - Amnesia [Recovering/Resolving]

NARRATIVE: CASE EVENT DATE: 20210622
